FAERS Safety Report 6922840-7 (Version None)
Quarter: 2010Q3

REPORT INFORMATION
  Report Type: 
  Country: None (occurrence: None)
  Receive Date: 20100813
  Receipt Date: 20100803
  Transmission Date: 20110219
  Serious: Yes (Disabling, Other)
  Sender: FDA-Public Use
  Company Number: US-PFIZER INC-2010052223

PATIENT
  Sex: Male

DRUGS (2)
  1. CHANTIX [Suspect]
     Indication: SMOKING CESSATION THERAPY
     Dosage: 0.5 MG, UNK
     Dates: start: 20070405, end: 20080305
  2. HUMALOG MIX [Concomitant]
     Dosage: UNK
     Dates: start: 20050101, end: 20090101

REACTIONS (2)
  - BIPOLAR DISORDER [None]
  - MAJOR DEPRESSION [None]
